FAERS Safety Report 4852993-6 (Version None)
Quarter: 2005Q4

REPORT INFORMATION
  Report Type: 
  Country: None (occurrence: None)
  Receive Date: 20051214
  Receipt Date: 20051114
  Transmission Date: 20060501
  Serious: Yes (Other)
  Sender: FDA-Public Use
  Company Number: US-AVENTIS-200520008GDDC

PATIENT
  Age: 8 Month
  Sex: Male
  Weight: 7.57 kg

DRUGS (5)
  1. CEFUROXIME AXETIL [Suspect]
     Indication: OTITIS MEDIA
     Dates: start: 20051025, end: 20051103
  2. TYLENOL W/ CODEINE [Concomitant]
     Dates: start: 20051025, end: 20051025
  3. TYLENOL INFANTS DROPS [Concomitant]
     Route: 048
     Dates: start: 20051025, end: 20051025
  4. INFLUENZA VACCINE [Concomitant]
     Route: 030
     Dates: start: 20051025, end: 20051025
  5. TYLENOL INFANTS DROPS [Concomitant]
     Route: 048
     Dates: start: 20051024, end: 20051024

REACTIONS (2)
  - CONVULSION [None]
  - STARING [None]
